FAERS Safety Report 14364811 (Version 1)
Quarter: 2018Q1

REPORT INFORMATION
  Report Type: Spontaneous
  Country: US (occurrence: US)
  Receive Date: 20180108
  Receipt Date: 20180108
  Transmission Date: 20180509
  Serious: No
  Sender: FDA-Public Use
  Company Number: None

PATIENT
  Age: 60 Year
  Sex: Female
  Weight: 94.5 kg

DRUGS (3)
  1. OSELTAMIVIR PHOSPHATE. [Suspect]
     Active Substance: OSELTAMIVIR PHOSPHATE
     Indication: INFLUENZA
     Dosage: ?          QUANTITY:1 CAPSULE(S);?
     Route: 048
     Dates: end: 20171226
  2. TUMS [Concomitant]
     Active Substance: CALCIUM CARBONATE
  3. MOTRIN [Concomitant]
     Active Substance: IBUPROFEN

REACTIONS (7)
  - Abdominal pain [None]
  - Diarrhoea [None]
  - Nausea [None]
  - Back pain [None]
  - Headache [None]
  - Dizziness [None]
  - Tinnitus [None]

NARRATIVE: CASE EVENT DATE: 20171226
